FAERS Safety Report 6430355-8 (Version None)
Quarter: 2009Q4

REPORT INFORMATION
  Report Type: 
  Country: None (occurrence: None)
  Receive Date: 20091104
  Receipt Date: 20091020
  Transmission Date: 20100525
  Serious: Yes (Life-Threatening)
  Sender: FDA-Public Use
  Company Number: AMAG200900033

PATIENT
  Age: 89 Year
  Sex: Female
  Weight: 60.2 kg

DRUGS (20)
  1. FERAHEME [Suspect]
     Indication: IRON DEFICIENCY ANAEMIA
     Dosage: 30 MG, SINGLE; INTRAVENOUS
     Route: 042
     Dates: start: 20091013, end: 20091013
  2. CLONIDINE [Concomitant]
  3. COLCHICINE (COLCHICINE) [Concomitant]
  4. COREG [Concomitant]
  5. EPOGEN [Concomitant]
  6. FOLIC ACID [Concomitant]
  7. HEPARIN [Concomitant]
  8. IBUPROFEN [Concomitant]
  9. NORVASC [Concomitant]
  10. PHOSLO [Concomitant]
  11. PLAVIX [Concomitant]
  12. SENSIPAR [Concomitant]
  13. TUMS (CALCIUM CARBONATE, MAGNESIUM CARBONATE, MAGNESIUM TRISILICATE) [Concomitant]
  14. TYLENOL [Concomitant]
  15. ASCORBIC ACID [Concomitant]
  16. BENADRYL (DIPHENHYDRAMINE HYDEOCHLORIDE) [Concomitant]
  17. IBUPROFEN [Concomitant]
  18. TRUSOPT [Concomitant]
  19. HECTOROL [Concomitant]
  20. DEXTROSE [Concomitant]

REACTIONS (3)
  - HYPOTENSION [None]
  - INFUSION SITE PAIN [None]
  - LOSS OF CONSCIOUSNESS [None]
